FAERS Safety Report 11823914 (Version 1)
Quarter: 2015Q4

REPORT INFORMATION
  Report Type: Spontaneous
  Country: IT (occurrence: IT)
  Receive Date: 20151210
  Receipt Date: 20151210
  Transmission Date: 20160305
  Serious: Yes (Other)
  Sender: FDA-Public Use
  Company Number: PHHY2015IT160113

PATIENT
  Age: 82 Year
  Sex: Female

DRUGS (2)
  1. CLEXANE [Suspect]
     Active Substance: ENOXAPARIN SODIUM
     Indication: ATRIAL FIBRILLATION
     Dosage: 4000 IU, QD
     Route: 058
     Dates: start: 20150713, end: 20150718
  2. ALLOPURINOL. [Suspect]
     Active Substance: ALLOPURINOL
     Indication: GOUTY ARTHRITIS
     Dosage: 150 MG, QD
     Route: 048
     Dates: start: 20150701, end: 20150718

REACTIONS (5)
  - Pruritus [Recovering/Resolving]
  - Orbital oedema [Recovering/Resolving]
  - Conjunctivitis [Recovering/Resolving]
  - Mouth ulceration [Recovering/Resolving]
  - Palmar-plantar erythrodysaesthesia syndrome [Recovering/Resolving]

NARRATIVE: CASE EVENT DATE: 20150715
